FAERS Safety Report 7776948-7 (Version None)
Quarter: 2011Q3

REPORT INFORMATION
  Report Type: 
  Country: None (occurrence: None)
  Receive Date: 20110926
  Receipt Date: 20110920
  Transmission Date: 20111222
  Serious: Yes (Hospitalization)
  Sender: FDA-Public Use
  Company Number: US-TEVA-301622USA

PATIENT
  Sex: Female

DRUGS (77)
  1. LEUCOVORIN CALCIUM [Suspect]
     Dosage: 400MG/M2
     Route: 042
     Dates: start: 20100322, end: 20100322
  2. MAGNESIUM [Concomitant]
     Dates: start: 20100602, end: 20100602
  3. ENOXAPARIN SODIUM [Concomitant]
     Indication: THROMBOSIS PROPHYLAXIS
     Dosage: 24 MILLIGRAM;
     Dates: start: 20100405, end: 20100408
  4. METOCLOPRAMIDE HYDROCHLORIDE [Concomitant]
     Indication: ABDOMINAL DISTENSION
     Dosage: 10 MILLIGRAM;
     Dates: start: 20100426, end: 20100510
  5. LEUCOVORIN CALCIUM [Suspect]
     Dosage: 400MG/M2
     Route: 042
     Dates: start: 20100413, end: 20100413
  6. OCTREOTIDE ACETATE [Concomitant]
     Indication: DIARRHOEA
     Dosage: 1.0714 MILLIGRAM;
     Dates: start: 20100412
  7. ACETAMINOPHEN [Concomitant]
     Indication: ARTHRITIS
     Dosage: 1000 MILLIGRAM;
  8. MAGNESIUM [Concomitant]
     Dosage: EVERY 1-2 WEEKS AS NEEDED
     Dates: start: 20100614
  9. POTASSIUM [Concomitant]
     Dates: start: 20100412, end: 20100412
  10. DIMETICONE, ACTIVATED [Concomitant]
     Indication: ABDOMINAL DISTENSION
     Dosage: AS NECESARY
     Route: 048
     Dates: start: 20100421, end: 20100712
  11. NORMAL SALINE WITH 20 MEQ KCL [Concomitant]
     Indication: SMALL INTESTINAL OBSTRUCTION
     Dosage: CONTINUOUS
     Dates: start: 20100405, end: 20100407
  12. FLUOROURACIL [Suspect]
     Dosage: 160 MG/M2
     Route: 042
     Dates: start: 20100503, end: 20100505
  13. LEUCOVORIN CALCIUM [Suspect]
     Indication: NEOPLASM
     Dosage: 400MG/M2
     Route: 042
     Dates: start: 20100308, end: 20100308
  14. ABT-888 VELIPARIB [Suspect]
     Dosage: 20 MILLIGRAM; 20MG
     Route: 048
     Dates: start: 20100503, end: 20100507
  15. ABT-888 VELIPARIB [Suspect]
     Dosage: 20 MILLIGRAM; 20MG
     Route: 048
     Dates: end: 20100618
  16. IRINOTECAN HCL [Suspect]
     Dosage: 100MG/M2
     Route: 042
     Dates: start: 20100503, end: 20100503
  17. IRINOTECAN HCL [Suspect]
     Dosage: 100MG/M2
     Route: 042
     Dates: start: 20100517, end: 20100517
  18. PROCHLORPERAZINE EDISYLATE [Concomitant]
     Indication: VOMITING
  19. DEXAMETHASONE [Concomitant]
     Indication: NAUSEA
     Dosage: .7143 MILLIGRAM;
     Dates: start: 20100308
  20. DEXAMETHASONE [Concomitant]
     Indication: VOMITING
  21. METRONIDAZOLE [Concomitant]
     Dosage: 150 MILLIGRAM; 150MG
     Dates: start: 20100405, end: 20100407
  22. MAGIC MOUTH WASH [Concomitant]
     Indication: DIARRHOEA
     Dosage: 20 ML; 20ML
  23. CETIRIZINE HCL [Concomitant]
     Indication: SEASONAL ALLERGY
     Dosage: 10 MILLIGRAM;
     Dates: start: 20100318, end: 20100726
  24. PANTOPRAZOLE SODIUM [Concomitant]
     Indication: GASTROOESOPHAGEAL REFLUX DISEASE
     Dosage: 40 MILLIGRAM;
     Dates: start: 20091201, end: 20100328
  25. ACETAMINOPHEN [Concomitant]
     Indication: TRANSFUSION
     Dates: start: 20100408, end: 20100408
  26. FLUOROURACIL [Suspect]
     Dosage: 2400MG/M2
     Route: 040
     Dates: start: 20100308, end: 20100310
  27. IRINOTECAN HCL [Suspect]
     Indication: NEOPLASM
     Dosage: 150MG/M2
     Route: 042
     Dates: start: 20100308, end: 20100308
  28. IRINOTECAN HCL [Suspect]
     Dosage: 120MG/M2
     Route: 042
     Dates: start: 20100413, end: 20100413
  29. CALCIUM CARBONATE [Concomitant]
     Indication: GASTROOESOPHAGEAL REFLUX DISEASE
     Dosage: AS REQUIRED
     Dates: start: 20091201, end: 20100701
  30. ACETAMINOPHEN [Concomitant]
     Indication: ABDOMINAL PAIN
  31. ONDANSETRON [Concomitant]
     Indication: NAUSEA
     Dosage: 16 MILLIGRAM; 16MG
     Dates: start: 20100403, end: 20100630
  32. POTASSIUM [Concomitant]
     Indication: HYPOKALAEMIA
     Dates: start: 20100322, end: 20100322
  33. POTASSIUM [Concomitant]
     Dosage: 40 MILLIEQUIVALENTS;
     Dates: start: 20100406, end: 20100406
  34. FAMOTIDINE [Concomitant]
     Indication: GASTROINTESTINAL DISORDER
     Dosage: 40 MILLIGRAM; 40 MILLIGRAM
     Dates: start: 20100405, end: 20100407
  35. SODIUM PHOSPHATE DIBASIC [Concomitant]
     Indication: HYPOPHOSPHATAEMIA
     Dosage: 7.2 MMOLE
     Dates: start: 20100405, end: 20100405
  36. FLUOROURACIL [Suspect]
     Indication: NEOPLASM
     Route: 040
     Dates: start: 20100308, end: 20100308
  37. FLUOROURACIL [Suspect]
     Dosage: 1920 MG/M2
     Route: 042
     Dates: start: 20100413, end: 20100415
  38. LEUCOVORIN CALCIUM [Suspect]
     Dosage: 100MG/M2
     Route: 042
     Dates: start: 20100517, end: 20100517
  39. LOPERAMIDE HCL [Concomitant]
     Indication: DIARRHOEA
     Dosage: 1-2TABS Q2H PRN
     Dates: start: 20100311, end: 20110101
  40. LIDOCAINE [Concomitant]
     Indication: LOCAL ANAESTHESIA
     Dates: start: 20100406, end: 20100406
  41. MAGNESIUM [Concomitant]
     Dates: start: 20100513, end: 20100513
  42. MUPIROCIN [Concomitant]
     Indication: SKIN FISSURES
     Dosage: 1 APPLICATION AS REQUIRED.
     Dates: start: 20100621, end: 20100621
  43. SODIUM CHLORIDE INJ [Concomitant]
     Indication: PROPHYLAXIS AGAINST DEHYDRATION
     Route: 042
     Dates: start: 20100405, end: 20100405
  44. SODIUM CHLORIDE INJ [Concomitant]
     Indication: HYPONATRAEMIA
     Route: 042
     Dates: start: 20100513, end: 20100513
  45. MAGNESIUM SULFATE [Concomitant]
     Dates: start: 20100607, end: 20100607
  46. FAMOTIDINE [Concomitant]
     Indication: GASTROOESOPHAGEAL REFLUX DISEASE
     Dosage: 10 MILLIGRAM;
     Dates: start: 20100422, end: 20100430
  47. ABT-888 VELIPARIB [Suspect]
     Indication: NEOPLASM
     Dosage: 20 MILLIGRAM; 20
     Route: 048
     Dates: start: 20100413, end: 20100417
  48. IRINOTECAN HCL [Suspect]
     Dosage: 150MG/M2
     Route: 042
     Dates: start: 20100322, end: 20100322
  49. METRONIDAZOLE [Concomitant]
     Indication: ANTIFUNGAL PROPHYLAXIS
     Dosage: 1500 MILLIGRAM; 1500MG
     Dates: start: 20100409, end: 20100413
  50. POTASSIUM CHLORIDE [Concomitant]
     Dosage: 20MEQ AS NEEDED
     Dates: start: 20100517, end: 20100816
  51. LORAZEPAM [Concomitant]
     Indication: ANXIETY
     Dosage: 2 MILLIGRAM; AS NEEDED
     Dates: start: 20100503, end: 20100601
  52. SODIUM CHLORIDE- MOUTH RINSE [Concomitant]
     Indication: STOMATITIS
     Dosage: AS NEEDED
     Dates: start: 20100621
  53. FLUOROURACIL [Suspect]
     Route: 040
     Dates: start: 20100322, end: 20100322
  54. ATROPINE [Concomitant]
     Indication: DIARRHOEA
  55. MULTI-VITAMIN [Concomitant]
     Indication: ROUTINE HEALTH MAINTENANCE
     Dates: start: 20091201
  56. MAGNESIUM [Concomitant]
     Indication: HYPOMAGNESAEMIA
     Dates: start: 20100413, end: 20100413
  57. POTASSIUM [Concomitant]
     Dates: start: 20100601, end: 20100601
  58. BACITRACIN [Concomitant]
     Indication: MOUTH ULCERATION
     Dosage: 1APPLICATION AS NECESSARY
     Dates: start: 20100607, end: 20100621
  59. RANITIDINE HYDROCHLORIDE [Concomitant]
     Indication: GASTROOESOPHAGEAL REFLUX DISEASE
     Dosage: 150 MILLIGRAM;
     Dates: start: 20100519, end: 20100726
  60. DIPHENHYDRAMINE HCL [Concomitant]
     Indication: TRANSFUSION
  61. FLUOROURACIL [Suspect]
     Dosage: 1460MG/M2
     Route: 042
  62. LEUCOVORIN CALCIUM [Suspect]
     Dosage: 400MG/M2
     Route: 042
     Dates: start: 20100503, end: 20100503
  63. PROCHLORPERAZINE EDISYLATE [Concomitant]
     Indication: NAUSEA
     Dosage: .7143 MILLIGRAM;
     Dates: start: 20100308
  64. LOPERAMIDE HCL [Concomitant]
     Dosage: PRN
     Dates: start: 19900101, end: 20100311
  65. POTASSIUM CHLORIDE [Concomitant]
     Indication: HYPOKALAEMIA
     Dosage: 20MEQ/100ML ONCE
     Dates: start: 20100412, end: 20100412
  66. POTASSIUM CHLORIDE [Concomitant]
     Dosage: 20 MILLIEQUIVALENTS;
     Dates: start: 20100426, end: 20100517
  67. FLUOXETINE [Concomitant]
     Indication: DEPRESSION
     Dosage: 20 MILLIGRAM;
     Dates: start: 19850101
  68. OCTREOTIDE ACETATE [Concomitant]
     Dosage: 300 MICROGRAM; 300MIGROGRAM
     Dates: start: 20100406, end: 20100408
  69. ONDANSETRON [Concomitant]
     Indication: VOMITING
     Dosage: 4MG/5ML EVERY OTHER WEEK
     Dates: start: 20100308, end: 20100630
  70. MAGNESIUM [Concomitant]
     Dates: start: 20100519, end: 20100519
  71. MAGNESIUM [Concomitant]
     Dates: start: 20100604, end: 20100604
  72. LORAZEPAM [Concomitant]
     Indication: INSOMNIA
  73. PEGFILGRASTIM [Concomitant]
     Indication: NEUTROPENIA
     Dosage: 6MG/0.6ML
     Dates: start: 20100505
  74. SODIUM CHLORIDE INJ [Concomitant]
     Indication: DEHYDRATION
     Route: 042
     Dates: start: 20100607, end: 20100607
  75. PAPAVER SOMNIFERUM TINCTURE [Concomitant]
     Indication: DIARRHOEA
     Dosage: AS NECESSARY
     Dates: start: 20100513, end: 20100513
  76. MAGIC MOUTH WASH WITH NYSTATIN [Concomitant]
     Indication: OROPHARYNGEAL PAIN
     Dosage: 1 TBSP QID
  77. ALUDROX [Concomitant]
     Indication: HYPOMAGNESAEMIA

REACTIONS (1)
  - ENTEROCOLITIS [None]
